FAERS Safety Report 12502279 (Version 1)
Quarter: 2016Q2

REPORT INFORMATION
  Report Type: Spontaneous
  Country: None (occurrence: PL)
  Receive Date: 20160627
  Receipt Date: 20160627
  Transmission Date: 20160815
  Serious: Yes (Other)
  Sender: FDA-Public Use
  Company Number: PL-MEDAC PHARMA, INC.-1054355

PATIENT
  Age: 32 Year
  Sex: Male
  Weight: 76 kg

DRUGS (1)
  1. METEX [Suspect]
     Active Substance: METFORMIN HYDROCHLORIDE
     Indication: RHEUMATOID ARTHRITIS
     Dates: start: 20160102, end: 20160123

REACTIONS (3)
  - Oropharyngeal pain [Unknown]
  - Epistaxis [Unknown]
  - Oral candidiasis [Unknown]

NARRATIVE: CASE EVENT DATE: 201601
